FAERS Safety Report 7086232-5 (Version None)
Quarter: 2010Q4

REPORT INFORMATION
  Report Type: 
  Country: None (occurrence: None)
  Receive Date: 20101027
  Receipt Date: 20101025
  Transmission Date: 20110411
  Serious: Yes (Other)
  Sender: FDA-Public Use
  Company Number: TRP_07354_2010

PATIENT
  Sex: Male

DRUGS (2)
  1. RIBAVIRIN [Suspect]
     Indication: PRODUCT USED FOR UNKNOWN INDICATION
     Dosage: (DF)
  2. PEGASYS [Suspect]
     Indication: PRODUCT USED FOR UNKNOWN INDICATION
     Dosage: (DF)

REACTIONS (10)
  - DIZZINESS [None]
  - FATIGUE [None]
  - FEELING COLD [None]
  - LUNG DISORDER [None]
  - NAUSEA [None]
  - PLATELET COUNT DECREASED [None]
  - PULMONARY MASS [None]
  - RASH PRURITIC [None]
  - URTICARIA [None]
  - VISION BLURRED [None]
